FAERS Safety Report 10046587 (Version 1)
Quarter: 2014Q1

REPORT INFORMATION
  Report Type: Spontaneous
  Country: US (occurrence: US)
  Receive Date: 20140331
  Receipt Date: 20140331
  Transmission Date: 20141002
  Serious: No
  Sender: FDA-Public Use
  Company Number: US-BIOGENIDEC-2014BI028298

PATIENT
  Age: 39 Year
  Sex: Female

DRUGS (9)
  1. TECFIDERA [Suspect]
     Indication: MULTIPLE SCLEROSIS
     Route: 048
  2. B COMPLEX-B12 [Concomitant]
  3. BACLOFEN [Concomitant]
  4. BIOTIN 5000 [Concomitant]
  5. DIAZEPAM [Concomitant]
  6. FOCALIN XR [Concomitant]
  7. HYDROCODONE-ACETAMINOPHEN [Concomitant]
  8. LIPITOR [Concomitant]
  9. ROBAXIN-750 [Concomitant]

REACTIONS (1)
  - Nasopharyngitis [Unknown]
